FAERS Safety Report 4951244-1 (Version None)
Quarter: 2006Q1

REPORT INFORMATION
  Report Type: 
  Country: None (occurrence: None)
  Receive Date: 20060317
  Receipt Date: 20060308
  Transmission Date: 20060701
  Serious: Yes (Other)
  Sender: FDA-Public Use
  Company Number: 13672

PATIENT
  Age: 24 Year
  Sex: Male

DRUGS (1)
  1. ACETYLCYSTEINE [Suspect]
     Indication: DRUG TOXICITY
     Dosage: 20 G ONCE IV
     Route: 042

REACTIONS (1)
  - ANAPHYLACTOID REACTION [None]
